FAERS Safety Report 9543054 (Version 1)
Quarter: 2013Q2

REPORT INFORMATION
  Report Type: Spontaneous
  Country: US (occurrence: None)
  Receive Date: 20130524
  Receipt Date: 20130524
  Transmission Date: 20140414
  Serious: No
  Sender: FDA-Public Use
  Company Number: PHEH2013US001061

PATIENT
  Age: 36 Year
  Sex: Female

DRUGS (5)
  1. GILENYA [Suspect]
     Indication: MULTIPLE SCLEROSIS
     Route: 048
     Dates: start: 20130108
  2. ZYRTEC (CETIRIZINE HYDROCHLORIDE) [Concomitant]
  3. SYNTHROID (LEVOTHYROXINE SODIUM) [Concomitant]
  4. ACYCLOVIR (ACICLOVIR) [Concomitant]
  5. VITAMIN D3 (COLECALCIFEROL) [Concomitant]

REACTIONS (6)
  - Muscle spasticity [None]
  - Visual impairment [None]
  - Paraesthesia [None]
  - Back pain [None]
  - Accidental overdose [None]
  - Headache [None]
